FAERS Safety Report 13829112 (Version 2)
Quarter: 2019Q3

REPORT INFORMATION
  Report Type: Report from Study
  Country: US (occurrence: US)
  Receive Date: 20170803
  Receipt Date: 20190916
  Transmission Date: 20191004
  Serious: Yes (Death, Other)
  Sender: FDA-Public Use
  Company Number: US-CELGENEUS-163-21880-12041175

PATIENT

DRUGS (9)
  1. MLN9708 [Suspect]
     Active Substance: IXAZOMIB
     Dosage: 3.95 MILLIGRAM/SQ. METER
     Route: 048
  2. REVLIMID [Suspect]
     Active Substance: LENALIDOMIDE
     Indication: PLASMA CELL MYELOMA
     Dosage: 25 MILLIGRAM
     Route: 048
  3. DEXAMETHASONE. [Suspect]
     Active Substance: DEXAMETHASONE
     Indication: PLASMA CELL MYELOMA
     Dosage: 40 MILLIGRAM
     Route: 065
  4. MLN9708 [Suspect]
     Active Substance: IXAZOMIB
     Dosage: 2.23 MILLIGRAM/SQ. METER
     Route: 048
  5. HEPARIN [Concomitant]
     Active Substance: HEPARIN SODIUM
     Indication: THROMBOSIS PROPHYLAXIS
     Route: 065
  6. MLN9708 [Suspect]
     Active Substance: IXAZOMIB
     Indication: PLASMA CELL MYELOMA
     Dosage: 1.68 MILLIGRAM/SQ. METER
     Route: 048
  7. REVLIMID [Suspect]
     Active Substance: LENALIDOMIDE
     Dosage: 15 MILLIGRAM
     Route: 048
  8. MLN9708 [Suspect]
     Active Substance: IXAZOMIB
     Dosage: 2.97 MILLIGRAM/SQ. METER
     Route: 048
  9. ASPIRIN. [Concomitant]
     Active Substance: ASPIRIN
     Indication: THROMBOSIS PROPHYLAXIS
     Route: 065

REACTIONS (56)
  - Pneumonia respiratory syncytial viral [Fatal]
  - Fatigue [Unknown]
  - Oedema peripheral [Unknown]
  - Alanine aminotransferase increased [Unknown]
  - Agitation [Unknown]
  - Syncope [Unknown]
  - Decreased appetite [Unknown]
  - Leukopenia [Unknown]
  - Gastrooesophageal reflux disease [Unknown]
  - Rash pustular [Unknown]
  - Acute myocardial infarction [Unknown]
  - Amnesia [Unknown]
  - Disease progression [Unknown]
  - Gastrointestinal haemorrhage [Unknown]
  - Rash erythematous [Unknown]
  - Neuropathy peripheral [Unknown]
  - Nausea [Unknown]
  - Dizziness [Unknown]
  - Embolism [Unknown]
  - Rash [Unknown]
  - Resting tremor [Unknown]
  - Muscle spasms [Unknown]
  - Neuralgia [Unknown]
  - Hypovolaemia [Unknown]
  - Hyperglycaemia [Unknown]
  - Hypophosphataemia [Unknown]
  - Aspartate aminotransferase increased [Unknown]
  - Mood swings [Unknown]
  - Rash maculo-papular [Unknown]
  - Dysgeusia [Unknown]
  - Pain in extremity [Unknown]
  - Intestinal perforation [Unknown]
  - Deep vein thrombosis [Unknown]
  - Neutropenia [Unknown]
  - Hypokalaemia [Unknown]
  - Bone abscess [Unknown]
  - Headache [Unknown]
  - Abdominal distension [Unknown]
  - Vomiting [Unknown]
  - Thrombocytopenia [Unknown]
  - Hypertension [Unknown]
  - Dehydration [Unknown]
  - Non-cardiac chest pain [Unknown]
  - Atrial fibrillation [Unknown]
  - Pneumonia [Unknown]
  - Constipation [Unknown]
  - Insomnia [Unknown]
  - Hypotension [Unknown]
  - Lymphopenia [Unknown]
  - Plasma cell myeloma [Unknown]
  - Dyspnoea [Unknown]
  - Hyponatraemia [Unknown]
  - Anaemia [Unknown]
  - Diarrhoea [Unknown]
  - Blood creatinine increased [Unknown]
  - Orthostatic hypotension [Unknown]
